FAERS Safety Report 21641585 (Version 1)
Quarter: 2022Q4

REPORT INFORMATION
  Report Type: Report from Study
  Country: DE (occurrence: DE)
  Receive Date: 20221125
  Receipt Date: 20221125
  Transmission Date: 20230113
  Serious: Yes (Death)
  Sender: FDA-Public Use
  Company Number: DE-SERVIER-S22011888

PATIENT
  Age: 78 Year
  Sex: Male
  Weight: 48 kg

DRUGS (1)
  1. ONIVYDE [Suspect]
     Active Substance: IRINOTECAN HYDROCHLORIDE
     Indication: Pancreatic carcinoma
     Dosage: 84 MG, UNK
     Route: 065
     Dates: start: 20220811, end: 20220901

REACTIONS (1)
  - Neoplasm progression [Fatal]

NARRATIVE: CASE EVENT DATE: 20220916
